FAERS Safety Report 15537300 (Version 4)
Quarter: 2018Q4

REPORT INFORMATION
  Report Type: Spontaneous
  Country: JP (occurrence: JP)
  Receive Date: 20181022
  Receipt Date: 20181115
  Transmission Date: 20190205
  Serious: Yes (Death)
  Sender: FDA-Public Use
  Company Number: JP-PFIZER INC-2018426886

PATIENT
  Age: 57 Year
  Sex: Female
  Weight: 66.4 kg

DRUGS (2)
  1. PACLITAXEL 100MG/16.7ML HOSPIRA [Suspect]
     Active Substance: PACLITAXEL
     Indication: UTERINE CANCER
     Dosage: 290 MG, 1X/DAY
     Route: 041
     Dates: start: 20180919, end: 20181017
  2. CARBOPLATIN. [Concomitant]
     Active Substance: CARBOPLATIN
     Indication: UTERINE CANCER
     Dosage: 625, 1X/DAY
     Route: 041
     Dates: start: 20180919, end: 20181017

REACTIONS (2)
  - Anaphylactic shock [Fatal]
  - Multiple organ dysfunction syndrome [Fatal]

NARRATIVE: CASE EVENT DATE: 20181017
